FAERS Safety Report 7572463-4 (Version None)
Quarter: 2011Q2

REPORT INFORMATION
  Report Type: 
  Country: None (occurrence: None)
  Receive Date: 20110624
  Receipt Date: 20110616
  Transmission Date: 20111010
  Serious: Yes (Hospitalization)
  Sender: FDA-Public Use
  Company Number: US-ALLERGAN-1102526US

PATIENT
  Age: 59 Year
  Sex: Female
  Weight: 53.515 kg

DRUGS (22)
  1. BOTULINUM TOXIN TYPE A [Suspect]
     Dosage: UNK UNITS, SINGLE
     Route: 030
     Dates: start: 20100614, end: 20100614
  2. ATENOLOL [Concomitant]
     Indication: PRODUCT USED FOR UNKNOWN INDICATION
  3. ADDERALL 10 [Concomitant]
     Indication: PRODUCT USED FOR UNKNOWN INDICATION
  4. OMEPRAZOLE [Concomitant]
     Indication: PRODUCT USED FOR UNKNOWN INDICATION
  5. FENOFIBRATE [Concomitant]
     Indication: PRODUCT USED FOR UNKNOWN INDICATION
  6. MIRALAX [Concomitant]
     Indication: PRODUCT USED FOR UNKNOWN INDICATION
     Dosage: UNK
  7. ESTRADIOL [Concomitant]
     Indication: PRODUCT USED FOR UNKNOWN INDICATION
  8. FISH OIL [Concomitant]
     Indication: PRODUCT USED FOR UNKNOWN INDICATION
  9. VALACYCLOVIR [Concomitant]
     Indication: PRODUCT USED FOR UNKNOWN INDICATION
  10. DOCUSATE SODIUM [Concomitant]
     Indication: PRODUCT USED FOR UNKNOWN INDICATION
     Dosage: UNK
  11. VESICARE [Concomitant]
     Indication: PRODUCT USED FOR UNKNOWN INDICATION
  12. PRESERVISION LUTEIN EYE VITA.+MIN.SUP.SOFTG. [Concomitant]
     Indication: PRODUCT USED FOR UNKNOWN INDICATION
     Dosage: UNK
  13. BISACODYL [Concomitant]
     Indication: PRODUCT USED FOR UNKNOWN INDICATION
     Dosage: UNK
  14. LEVOTHYROXINE SODIUM [Concomitant]
     Indication: PRODUCT USED FOR UNKNOWN INDICATION
  15. CRESTOR [Concomitant]
     Indication: PRODUCT USED FOR UNKNOWN INDICATION
  16. BOTULINUM TOXIN TYPE A [Suspect]
     Dosage: 400 UNITS, SINGLE
     Route: 030
     Dates: start: 20100914, end: 20100914
  17. LEXAPRO [Concomitant]
     Indication: PRODUCT USED FOR UNKNOWN INDICATION
  18. TIZANIDINE HCL [Concomitant]
     Indication: PRODUCT USED FOR UNKNOWN INDICATION
  19. BOTULINUM TOXIN TYPE A [Suspect]
     Indication: HEMIPLEGIA
     Dosage: 600 UNITS, SINGLE
     Route: 030
     Dates: start: 20101214, end: 20101214
  20. NAPROXEN [Concomitant]
     Indication: PRODUCT USED FOR UNKNOWN INDICATION
     Dosage: UNK
  21. CARBIDOPA [Concomitant]
     Indication: PRODUCT USED FOR UNKNOWN INDICATION
  22. VITAMIN D [Concomitant]
     Indication: PRODUCT USED FOR UNKNOWN INDICATION

REACTIONS (24)
  - MUSCLE SPASTICITY [None]
  - MUSCULAR WEAKNESS [None]
  - CHOKING [None]
  - ABDOMINAL DISTENSION [None]
  - SKIN ULCER [None]
  - JOINT RANGE OF MOTION DECREASED [None]
  - ASTHENIA [None]
  - INJECTION SITE REACTION [None]
  - GLOSSODYNIA [None]
  - DRY MOUTH [None]
  - RHINORRHOEA [None]
  - DRUG INEFFECTIVE [None]
  - ASPIRATION [None]
  - NECK PAIN [None]
  - DYSPHAGIA [None]
  - CONSTIPATION [None]
  - DYSPNOEA [None]
  - THERAPEUTIC RESPONSE UNEXPECTED [None]
  - FALL [None]
  - MUSCULOSKELETAL PAIN [None]
  - INJECTION SITE SWELLING [None]
  - TONGUE PARALYSIS [None]
  - GASTROOESOPHAGEAL REFLUX DISEASE [None]
  - NAUSEA [None]
